FAERS Safety Report 7465179-6 (Version None)
Quarter: 2011Q2

REPORT INFORMATION
  Report Type: 
  Country: None (occurrence: None)
  Receive Date: 20110509
  Receipt Date: 20110425
  Transmission Date: 20111010
  Serious: Yes (Death, Other)
  Sender: FDA-Public Use
  Company Number: US-PFIZER INC-2011096237

PATIENT
  Age: 26 Year
  Sex: Male

DRUGS (9)
  1. COCAINE [Suspect]
  2. CANNABIS [Suspect]
  3. MORPHINE [Suspect]
  4. ESCITALOPRAM [Suspect]
  5. XANAX [Suspect]
  6. IBUPROFEN [Suspect]
  7. QUETIAPINE [Suspect]
  8. HYDROXYZINE HCL [Suspect]
  9. OXYCONTIN [Suspect]

REACTIONS (2)
  - ACCIDENTAL OVERDOSE [None]
  - TOXICITY TO VARIOUS AGENTS [None]
